FAERS Safety Report 9380678 (Version 1)
Quarter: 2013Q3

REPORT INFORMATION
  Report Type: Spontaneous
  Country: BR (occurrence: BR)
  Receive Date: 20130702
  Receipt Date: 20130702
  Transmission Date: 20140515
  Serious: Yes (Disabling, Other)
  Sender: FDA-Public Use
  Company Number: CHNY2013BR001413

PATIENT
  Sex: Female
  Weight: 60 kg

DRUGS (1)
  1. CIBALENAA [Suspect]
     Indication: MIGRAINE
     Dosage: 2 DF, QD
     Route: 048

REACTIONS (7)
  - Deafness unilateral [Not Recovered/Not Resolved]
  - Cerebrovascular accident [Recovered/Resolved]
  - Gastric ulcer [Not Recovered/Not Resolved]
  - Depression [Not Recovered/Not Resolved]
  - Rheumatic disorder [Not Recovered/Not Resolved]
  - Anger [Not Recovered/Not Resolved]
  - Malaise [Unknown]
